FAERS Safety Report 7990393-0 (Version None)
Quarter: 2011Q4

REPORT INFORMATION
  Report Type: 
  Country: None (occurrence: None)
  Receive Date: 20111219
  Receipt Date: 20110513
  Transmission Date: 20120403
  Serious: No
  Sender: FDA-Public Use
  Company Number: US-ASTRAZENECA-2011SE29383

PATIENT
  Age: 65 Year
  Sex: Female
  Weight: 72.6 kg

DRUGS (3)
  1. MULTI-VITAMIN [Concomitant]
  2. CALCIUM [Concomitant]
  3. CRESTOR [Suspect]
     Route: 048

REACTIONS (2)
  - ALOPECIA [None]
  - WEIGHT INCREASED [None]
